FAERS Safety Report 8801040 (Version 1)
Quarter: 2012Q4

REPORT INFORMATION
  Report Type: Report from Study
  Country: US (occurrence: US)
  Receive Date: 20120921
  Receipt Date: 20120921
  Transmission Date: 20130627
  Serious: Yes (Other)
  Sender: FDA-Public Use
  Company Number: US-ASTELLAS-2012US008003

PATIENT

DRUGS (2)
  1. ERLOTINIB TABLET [Suspect]
     Indication: MALIGNANT GLIOMA
     Dosage: 28 day cycles
     Route: 048
  2. DASATINIB [Suspect]
     Indication: MALIGNANT GLIOMA
     Dosage: 28 days scyles
     Route: 048

REACTIONS (2)
  - Off label use [Unknown]
  - Neutropenia [Unknown]
